FAERS Safety Report 8470158-6 (Version None)
Quarter: 2012Q2

REPORT INFORMATION
  Report Type: 
  Country: None (occurrence: None)
  Receive Date: 20120627
  Receipt Date: 20120621
  Transmission Date: 20120825
  Serious: Yes (Hospitalization)
  Sender: FDA-Public Use
  Company Number: GB-SP-2012-06135

PATIENT
  Age: 73 Year
  Sex: Male

DRUGS (1)
  1. TICE BCG [Suspect]
     Indication: BLADDER CANCER
     Route: 043

REACTIONS (4)
  - JOINT SWELLING [None]
  - DYSURIA [None]
  - ARTHRALGIA [None]
  - OCULAR HYPERAEMIA [None]
